FAERS Safety Report 7421887-4 (Version None)
Quarter: 2011Q2

REPORT INFORMATION
  Report Type: 
  Country: None (occurrence: None)
  Receive Date: 20110418
  Receipt Date: 20110406
  Transmission Date: 20111010
  Serious: Yes (Disabling, Other)
  Sender: FDA-Public Use
  Company Number: PHHY2009JP56391

PATIENT
  Sex: Female
  Weight: 48 kg

DRUGS (9)
  1. AREDIA [Suspect]
     Indication: METASTASES TO BONE
     Dosage: 90 MG, QMO
     Route: 042
     Dates: start: 20051201, end: 20060829
  2. DECADRON [Suspect]
     Indication: METASTASES TO BONE
     Dosage: 8 MG, UNK
     Route: 041
     Dates: start: 20050310
  3. CHLOR-TRIMETON [Concomitant]
     Indication: METASTASES TO BONE
     Dosage: UNK
     Route: 041
     Dates: start: 20070712, end: 20080221
  4. DOCETAXEL [Concomitant]
     Indication: METASTASES TO BONE
     Dosage: UNK
     Route: 042
     Dates: start: 20070712, end: 20080221
  5. ZOMETA [Suspect]
     Indication: METASTASES TO BONE
     Dosage: 4 MG, QMO
     Route: 042
     Dates: start: 20060921, end: 20080207
  6. ENDOXAN [Concomitant]
     Indication: METASTASES TO BONE
     Dosage: UNK
     Route: 041
     Dates: start: 20070308, end: 20070531
  7. FARMORUBICIN [Concomitant]
     Indication: METASTASES TO BONE
     Dosage: UNK
     Route: 041
     Dates: start: 20070308, end: 20070531
  8. TAXOL [Concomitant]
     Indication: METASTASES TO BONE
     Dosage: UNK
     Route: 041
     Dates: start: 20050310, end: 20070216
  9. FLUOROURACIL [Concomitant]
     Indication: METASTASES TO BONE
     Dosage: UNK
     Route: 041
     Dates: start: 20070308, end: 20070531

REACTIONS (8)
  - PRIMARY SEQUESTRUM [None]
  - OSTEONECROSIS OF JAW [None]
  - PALATAL DISORDER [None]
  - ORAL CAVITY FISTULA [None]
  - BONE DISORDER [None]
  - DYSPHONIA [None]
  - ORAL DISORDER [None]
  - ULCER [None]
